FAERS Safety Report 8571719-6 (Version None)
Quarter: 2012Q3

REPORT INFORMATION
  Report Type: 
  Country: None (occurrence: None)
  Receive Date: 20120806
  Receipt Date: 20120802
  Transmission Date: 20120928
  Serious: Yes (Death)
  Sender: FDA-Public Use
  Company Number: PHHY2012TR064668

PATIENT
  Sex: Male

DRUGS (5)
  1. CLOPIDOGREL [Concomitant]
     Indication: CEREBROVASCULAR DISORDER
     Dosage: 1 DF, UNK
     Dates: start: 20120508
  2. PIRACETAM [Concomitant]
     Indication: CEREBROVASCULAR DISORDER
     Dosage: 3 DF, UNK
     Dates: start: 20120508
  3. QUETIAPINE [Concomitant]
     Indication: DEMENTIA
     Dosage: 2 DF, UNK
     Dates: start: 20120508
  4. QUETIAPINE [Concomitant]
     Indication: PSYCHOTIC DISORDER DUE TO A GENERAL MEDICAL CONDITION
  5. EXELON [Suspect]
     Indication: DEMENTIA ALZHEIMER'S TYPE
     Dosage: 9.5 MG, DAILY
     Route: 062
     Dates: start: 20101124

REACTIONS (1)
  - DEATH [None]
